FAERS Safety Report 5132956-6 (Version None)
Quarter: 2006Q4

REPORT INFORMATION
  Report Type: 
  Country: None (occurrence: None)
  Receive Date: 20061019
  Receipt Date: 20061019
  Transmission Date: 20070319
  Serious: Yes (Hospitalization)
  Sender: FDA-Public Use
  Company Number: None

PATIENT
  Age: 62 Year
  Sex: Male
  Weight: 78.5 kg

DRUGS (8)
  1. AMOXICILLIN + CLAVULANATE POTASSIUM [Suspect]
  2. BETAMETHASONE VALERATE [Concomitant]
  3. ALBUTEROL SULFATE AND IPRATROPIUM BROMIDE [Concomitant]
  4. DM / GUAIFENESIN [Concomitant]
  5. DIVALPROEX [Concomitant]
  6. FORMOTEROL FUMARATE [Concomitant]
  7. TRIAMCINOLONE [Concomitant]
  8. DIPHENHYDRAMINE HCL [Concomitant]

REACTIONS (2)
  - PRURITUS [None]
  - RASH [None]
